FAERS Safety Report 15344153 (Version 1)
Quarter: 2018Q3

REPORT INFORMATION
  Report Type: Spontaneous
  Country: IT (occurrence: IT)
  Receive Date: 20180903
  Receipt Date: 20180903
  Transmission Date: 20181010
  Serious: Yes (Hospitalization)
  Sender: FDA-Public Use
  Company Number: IT-TEVA-2018-IT-916875

PATIENT
  Age: 18 Year
  Sex: Female

DRUGS (1)
  1. SODIUM VALPROATE [Suspect]
     Active Substance: VALPROATE SODIUM
     Dosage: 600 MILLIGRAM DAILY;
     Route: 048
     Dates: start: 20170330, end: 20170419

REACTIONS (2)
  - Drug ineffective [Unknown]
  - Leukopenia [Recovered/Resolved]

NARRATIVE: CASE EVENT DATE: 20170419
